FAERS Safety Report 17916714 (Version 1)
Quarter: 2020Q2

REPORT INFORMATION
  Report Type: Spontaneous
  Country: ES (occurrence: ES)
  Receive Date: 20200619
  Receipt Date: 20200619
  Transmission Date: 20200714
  Serious: Yes (Hospitalization, Disabling)
  Sender: FDA-Public Use
  Company Number: ES-ABBVIE-20K-144-3452699-00

PATIENT
  Age: 45 Year
  Sex: Female

DRUGS (3)
  1. AZITROMICINA [Concomitant]
     Active Substance: AZITHROMYCIN DIHYDRATE
     Indication: COVID-19 TREATMENT
     Dosage: 500 MG DAILY
     Route: 048
     Dates: start: 20200410, end: 20200614
  2. KALETRA [Suspect]
     Active Substance: LOPINAVIR\RITONAVIR
     Indication: COVID-19 TREATMENT
     Dosage: DIARIA
     Route: 048
     Dates: start: 20200410, end: 20200414
  3. HIDROXICLOROQUINA [Concomitant]
     Active Substance: HYDROXYCHLOROQUINE
     Indication: COVID-19 TREATMENT
     Dosage: 200 MG / 12 H
     Route: 048
     Dates: start: 20200410, end: 20200419

REACTIONS (1)
  - Hyperthyroidism [Not Recovered/Not Resolved]

NARRATIVE: CASE EVENT DATE: 20200420
